FAERS Safety Report 6009304-2 (Version None)
Quarter: 2008Q4

REPORT INFORMATION
  Report Type: 
  Country: None (occurrence: None)
  Receive Date: 20081217
  Receipt Date: 20080327
  Transmission Date: 20090506
  Serious: Yes (Other)
  Sender: FDA-Public Use
  Company Number: US-AMGEN-QUU270626

PATIENT
  Sex: Female

DRUGS (6)
  1. ENBREL [Suspect]
     Indication: PSORIASIS
     Route: 030
     Dates: start: 20080207, end: 20080307
  2. RESTASIS [Concomitant]
  3. CYMBALTA [Concomitant]
  4. NEURONTIN [Concomitant]
  5. BUPRENORPHINE HCL [Concomitant]
  6. NALOXONE [Concomitant]

REACTIONS (1)
  - CARDIAC FAILURE CONGESTIVE [None]
